FAERS Safety Report 5285939-X (Version None)
Quarter: 2007Q2

REPORT INFORMATION
  Report Type: 
  Country: None (occurrence: None)
  Receive Date: 20070404
  Receipt Date: 20070323
  Transmission Date: 20071010
  Serious: Yes (Other)
  Sender: FDA-Public Use
  Company Number: US-KINGPHARMUSA00001-K200700367

PATIENT

DRUGS (4)
  1. ALTACE [Suspect]
     Indication: HYPERTENSION
     Route: 048
     Dates: start: 20070105, end: 20070209
  2. PLETAL [Suspect]
     Dosage: 200 MG, QD
     Route: 048
  3. NEBIVOLOL HCL [Concomitant]
     Dosage: 2.5 MG, UNK
     Route: 048
  4. NICORANDIL [Concomitant]
     Dosage: 20 MG, UNK
     Route: 048

REACTIONS (6)
  - BLOOD PRESSURE INCREASED [None]
  - DIARRHOEA [None]
  - DRUG INEFFECTIVE [None]
  - DRUG INTERACTION [None]
  - INTERMITTENT CLAUDICATION [None]
  - MOUTH ULCERATION [None]
